FAERS Safety Report 22347385 (Version 1)
Quarter: 2023Q2

REPORT INFORMATION
  Report Type: Report from Study
  Country: CO (occurrence: CO)
  Receive Date: 20230521
  Receipt Date: 20230521
  Transmission Date: 20230721
  Serious: Yes (Hospitalization)
  Sender: FDA-Public Use
  Company Number: CO-ABBVIE-4772669

PATIENT
  Age: 52 Year
  Sex: Female

DRUGS (1)
  1. ZEMPLAR [Suspect]
     Active Substance: PARICALCITOL
     Indication: Chronic kidney disease
     Dosage: FORM STRENGTH 5 MICROGRAM
     Route: 042
     Dates: start: 20201008, end: 20221015

REACTIONS (2)
  - Haematemesis [Recovering/Resolving]
  - Internal injury [Recovering/Resolving]

NARRATIVE: CASE EVENT DATE: 20230501
